FAERS Safety Report 19764284 (Version 1)
Quarter: 2021Q3

REPORT INFORMATION
  Report Type: Spontaneous
  Country: CA (occurrence: CA)
  Receive Date: 20210831
  Receipt Date: 20210831
  Transmission Date: 20211014
  Serious: Yes (Other)
  Sender: FDA-Public Use
  Company Number: CA-AMGEN-CANSP2021131615

PATIENT

DRUGS (2)
  1. PANITUMUMAB [Suspect]
     Active Substance: PANITUMUMAB
     Indication: COLORECTAL CANCER METASTATIC
     Dosage: 4.8 MILLIGRAM/KILOGRAM
     Route: 042
  2. TRAMETINIB [Suspect]
     Active Substance: TRAMETINIB
     Indication: COLORECTAL CANCER METASTATIC
     Dosage: 1.5 MILLIGRAM
     Route: 048

REACTIONS (2)
  - Gene mutation [Unknown]
  - Colorectal cancer metastatic [Unknown]
